FAERS Safety Report 22118873 (Version 1)
Quarter: 2023Q1

REPORT INFORMATION
  Report Type: Spontaneous
  Country: FR (occurrence: FR)
  Receive Date: 20230321
  Receipt Date: 20230321
  Transmission Date: 20230418
  Serious: Yes (Other)
  Sender: FDA-Public Use
  Company Number: FR-GSKCCFEMEA-Case-01612905_AE-64425

PATIENT
  Age: 30 Year
  Sex: Male
  Weight: 94 kg

DRUGS (12)
  1. PREDNISONE [Suspect]
     Active Substance: PREDNISONE
     Indication: Product used for unknown indication
     Dosage: 1 DF, QD, IN THE MORNING, 7.5 MG
     Route: 065
  2. PREDNISONE [Suspect]
     Active Substance: PREDNISONE
     Dosage: 1 DF, QD,  IN THE MORNING, 15 MG
     Route: 065
  3. PREDNISONE [Suspect]
     Active Substance: PREDNISONE
     Dosage: 1 DF, QD,  IN THE MORNING, 12.5 MG
     Route: 065
  4. PREDNISONE [Suspect]
     Active Substance: PREDNISONE
     Dosage: 1 DF, QD,  IN THE MORNING, 10 MG
     Route: 065
  5. PREDNISONE [Suspect]
     Active Substance: PREDNISONE
     Dosage: 1 DF, QD, IN THE MORNING, 17.5 MG
     Route: 048
  6. PREDNISONE [Suspect]
     Active Substance: PREDNISONE
     Dosage: 1 DF, QD,  IN THE MORNING, 5MG
     Route: 065
     Dates: start: 20221017, end: 20230109
  7. PANTOPRAZOLE [Suspect]
     Active Substance: PANTOPRAZOLE
     Indication: Dyspepsia
     Dosage: 20 MG, QD, IN THE EVENING
     Route: 048
     Dates: start: 20221017
  8. HYDROCORTISONE [Suspect]
     Active Substance: HYDROCORTISONE
     Indication: Product used for unknown indication
     Dosage: 10 MG, QD (CUMULATIVE DOSE 20 MG)
     Route: 048
     Dates: start: 20221017, end: 20230110
  9. CHOLECALCIFEROL [Suspect]
     Active Substance: CHOLECALCIFEROL
     Indication: Product used for unknown indication
     Dosage: UNK UNK, Z, 50000UI, 1 VIAL PER MONTH
     Route: 048
     Dates: start: 20221017
  10. CALCIUM CARBONATE [Suspect]
     Active Substance: CALCIUM CARBONATE
     Indication: Product used for unknown indication
     Dosage: 500 MG, QD,  1 SACHET IN THE EVENING
     Route: 048
     Dates: start: 20221017
  11. BETAMETHASONE VALERATE [Suspect]
     Active Substance: BETAMETHASONE VALERATE
     Indication: Systemic lupus erythematosus
     Dosage: 1 %, QD, 1 APPLICATION PER IN THE MORNING
     Route: 003
     Dates: start: 20221017
  12. BENLYSTA [Suspect]
     Active Substance: BELIMUMAB
     Indication: Systemic lupus erythematosus
     Dosage: 200 MG, QW, 1 INJECTION
     Route: 058
     Dates: start: 20221019

REACTIONS (2)
  - Injection site pain [Recovering/Resolving]
  - Contusion [Unknown]

NARRATIVE: CASE EVENT DATE: 20221019
